FAERS Safety Report 5425375-6 (Version None)
Quarter: 2007Q3

REPORT INFORMATION
  Report Type: 
  Country: None (occurrence: None)
  Receive Date: 20070824
  Receipt Date: 20070814
  Transmission Date: 20080115
  Serious: Yes (Hospitalization)
  Sender: FDA-Public Use
  Company Number: GB-ABBOTT-07P-167-0376522-00

PATIENT
  Sex: Male
  Weight: 41.8 kg

DRUGS (9)
  1. CLARITHROMYCIN [Suspect]
     Indication: LOWER RESPIRATORY TRACT INFECTION
     Route: 048
     Dates: start: 20070726, end: 20070727
  2. CLARITHROMYCIN [Suspect]
     Route: 042
     Dates: start: 20070729, end: 20070731
  3. CLARITHROMYCIN [Suspect]
     Indication: SICKLE CELL ANAEMIA WITH CRISIS
     Route: 048
     Dates: start: 20070727, end: 20070729
  4. CLARITHROMYCIN [Suspect]
  5. MORPHINE [Concomitant]
     Indication: PAIN
     Dosage: 1-5 MG/HOUR
     Route: 042
     Dates: start: 20070725, end: 20070802
  6. PARACETAMOL [Concomitant]
     Indication: PAIN
     Route: 048
     Dates: start: 20070725
  7. CEFUROXIME [Concomitant]
     Indication: LOWER RESPIRATORY TRACT INFECTION
     Route: 042
     Dates: start: 20070725, end: 20070802
  8. IBUPROFEN [Concomitant]
     Indication: PAIN
     Route: 048
     Dates: start: 20070727
  9. LACTULOSE [Concomitant]
     Indication: CONSTIPATION
     Route: 048
     Dates: start: 20070731

REACTIONS (2)
  - BILIRUBIN CONJUGATED INCREASED [None]
  - JAUNDICE [None]
